FAERS Safety Report 5181289-0 (Version None)
Quarter: 2006Q4

REPORT INFORMATION
  Report Type: 
  Country: None (occurrence: None)
  Receive Date: 20061220
  Receipt Date: 20051202
  Transmission Date: 20070319
  Serious: No
  Sender: FDA-Public Use
  Company Number: US-GLAXOSMITHKLINE-A0584405A

PATIENT
  Age: 40 Year
  Sex: Male

DRUGS (1)
  1. COMMIT [Suspect]

REACTIONS (2)
  - HEADACHE [None]
  - HOT FLUSH [None]
